FAERS Safety Report 6989609-9 (Version None)
Quarter: 2010Q3

REPORT INFORMATION
  Report Type: 
  Country: None (occurrence: None)
  Receive Date: 20100916
  Receipt Date: 20100201
  Transmission Date: 20110219
  Serious: Yes (Other)
  Sender: FDA-Public Use
  Company Number: BR-PFIZER INC-2010006874

PATIENT
  Age: 25 Year
  Sex: Male

DRUGS (5)
  1. LYRICA [Suspect]
     Indication: DEPRESSION
     Dosage: 900MG DAILY
     Route: 048
     Dates: start: 20091201
  2. LYRICA [Suspect]
     Dosage: 1200MG DAILY
     Route: 048
     Dates: start: 20091201
  3. FLUOXETINE [Concomitant]
     Indication: ANXIETY
     Dosage: 60MG
     Dates: start: 20090801
  4. FLUOXETINE [Concomitant]
     Indication: DEPRESSION
     Dosage: 80 MG, UNK
     Dates: start: 20090801
  5. FLUOXETINE [Concomitant]
     Dosage: 100MG DAILY
     Dates: start: 20090801

REACTIONS (1)
  - INTENTIONAL DRUG MISUSE [None]
